FAERS Safety Report 8099071-3 (Version None)
Quarter: 2012Q1

REPORT INFORMATION
  Report Type: 
  Country: None (occurrence: None)
  Receive Date: 20120129
  Receipt Date: 20111024
  Transmission Date: 20120608
  Serious: No
  Sender: FDA-Public Use
  Company Number: US-ABBOTT-11P-163-0868041-00

PATIENT
  Sex: Female

DRUGS (8)
  1. NORVASC [Concomitant]
     Indication: HYPERTENSION
  2. FOLIC ACID [Concomitant]
     Indication: RHEUMATOID ARTHRITIS
  3. HUMIRA [Suspect]
     Indication: RHEUMATOID ARTHRITIS
     Route: 058
     Dates: start: 20050101, end: 20111001
  4. METHOTREXATE [Concomitant]
     Indication: RHEUMATOID ARTHRITIS
     Dosage: 8 TABS ON MONDAY ONLY
  5. LISINOPRIL [Concomitant]
     Indication: HYPERTENSION
  6. MULTI-VITAMIN [Concomitant]
     Indication: SUPPLEMENTATION THERAPY
  7. VITAMIN D [Concomitant]
     Indication: SUPPLEMENTATION THERAPY
  8. IRON [Concomitant]
     Indication: SUPPLEMENTATION THERAPY

REACTIONS (2)
  - RHEUMATOID ARTHRITIS [None]
  - ARTHRALGIA [None]
